FAERS Safety Report 25295038 (Version 2)
Quarter: 2025Q2

REPORT INFORMATION
  Report Type: Report from Study
  Country: US (occurrence: US)
  Receive Date: 20250511
  Receipt Date: 20250517
  Transmission Date: 20250716
  Serious: No
  Sender: SANOFI AVENTIS
  Company Number: US-SA-2025SA128317

PATIENT
  Age: 53 Year
  Sex: Female

DRUGS (1)
  1. DUPILUMAB [Suspect]
     Active Substance: DUPILUMAB
     Indication: Neurodermatitis
     Dosage: 300 MG, QOW
     Route: 058
     Dates: start: 202501

REACTIONS (6)
  - Conjunctivitis [Unknown]
  - Eyelid margin crusting [Recovered/Resolved]
  - Eye discharge [Recovered/Resolved]
  - Lacrimation increased [Unknown]
  - Vision blurred [Recovered/Resolved]
  - Eye irritation [Unknown]

NARRATIVE: CASE EVENT DATE: 20250101
